FAERS Safety Report 8552522-X (Version None)
Quarter: 2012Q3

REPORT INFORMATION
  Report Type: 
  Country: None (occurrence: None)
  Receive Date: 20120719
  Receipt Date: 20120705
  Transmission Date: 20120928
  Serious: Yes (Hospitalization)
  Sender: FDA-Public Use
  Company Number: 2012AP002107

PATIENT
  Age: 68 Year
  Sex: Female
  Weight: 84 kg

DRUGS (32)
  1. SULFONAMIDES [Concomitant]
  2. OMEPRAZOLE [Concomitant]
  3. TRIAMTERENE AND HYDROCHLOROTHIAZIDE [Concomitant]
  4. LEVOFLOXACIN [Concomitant]
  5. PREGABALIN [Concomitant]
  6. LEVOTHYROXINE SODIUM [Concomitant]
  7. LIPITOR [Concomitant]
  8. NITROUS OXIDE [Concomitant]
  9. CYMBALTA [Suspect]
     Indication: DEPRESSION
  10. CYMBALTA [Suspect]
     Indication: ANXIETY
  11. PAXIL [Suspect]
     Indication: ANXIETY
  12. PAXIL [Suspect]
     Indication: DEPRESSION
  13. GABITRIL [Concomitant]
  14. HYDROMORPHONE HYDROCHLORIDE [Concomitant]
  15. GABAPENTIN [Concomitant]
  16. FENTANYL CITRATE [Suspect]
     Indication: PAIN
     Dosage: 100 ?G; 50 ?G; 100 ?G;
  17. FENTANYL CITRATE [Suspect]
     Indication: INDUCTION OF ANAESTHESIA
     Dosage: 100 ?G; 50 ?G; 100 ?G;
  18. BUPROPION HYDROCHLORIDE [Suspect]
     Indication: DEPRESSION
  19. BUPROPION HYDROCHLORIDE [Suspect]
     Indication: ANXIETY
  20. FOSAMAX [Concomitant]
  21. PROPOFOL [Concomitant]
  22. SUXAMETHONIUM CHLORIDE [Concomitant]
  23. HYDROCODONE BITARTRATE [Concomitant]
  24. OXYCODONE HCL [Concomitant]
  25. FLUDROCORTISONE ACETATE [Concomitant]
  26. CLONAZEPAM [Concomitant]
  27. MIDAZOLAM [Concomitant]
  28. CALCIUM [Concomitant]
  29. DESFLURANE [Concomitant]
  30. MULTI-VITAMINS [Concomitant]
  31. ONDANSETRON HYDROCHLORIDE [Suspect]
     Indication: PRODUCT USED FOR UNKNOWN INDICATION
     Dosage: 4 MG;
  32. LISINOPRIL [Concomitant]

REACTIONS (3)
  - APNOEA [None]
  - UNRESPONSIVE TO STIMULI [None]
  - SEROTONIN SYNDROME [None]
